FAERS Safety Report 13439558 (Version 8)
Quarter: 2018Q2

REPORT INFORMATION
  Report Type: Report from Study
  Country: CN (occurrence: CN)
  Receive Date: 20170412
  Receipt Date: 20180503
  Transmission Date: 20180711
  Serious: Yes (Hospitalization, Other)
  Sender: FDA-Public Use
  Company Number: PHHY2017CN030765

PATIENT
  Age: 47 Year
  Sex: Female
  Weight: 48 kg

DRUGS (123)
  1. MYFORTIC [Suspect]
     Active Substance: MYCOPHENOLATE SODIUM
     Dosage: 1080 MG, QD
     Route: 048
     Dates: start: 20170601, end: 20170815
  2. TACROLIMUS. [Suspect]
     Active Substance: TACROLIMUS
     Dosage: 3.5 MG, QD
     Route: 065
     Dates: start: 20170119, end: 20170208
  3. TACROLIMUS. [Suspect]
     Active Substance: TACROLIMUS
     Dosage: 1 MG, QD
     Route: 065
     Dates: start: 20170304
  4. DIOVAN [Concomitant]
     Active Substance: VALSARTAN
     Dosage: 80 MG, BID
     Route: 048
     Dates: start: 20160911, end: 20160922
  5. DIOVAN [Concomitant]
     Active Substance: VALSARTAN
     Dosage: 80 MG, QD
     Route: 065
     Dates: start: 20170119
  6. AMBROXOL HYDROCHLORIDE [Concomitant]
     Active Substance: AMBROXOL HYDROCHLORIDE
     Dosage: 60 MG, BID
     Route: 042
     Dates: start: 20160910, end: 20160910
  7. TORASEMIDE [Concomitant]
     Active Substance: TORSEMIDE
     Dosage: 20 MG, TEMPORARILY ONLY ONCE
     Route: 048
     Dates: start: 20170302, end: 20170302
  8. LOSEC [Concomitant]
     Active Substance: OMEPRAZOLE
     Indication: PROPHYLAXIS AGAINST GASTROINTESTINAL ULCER
     Dosage: 40 MG, QD TEMPORARILY
     Route: 042
     Dates: start: 20160909, end: 20160909
  9. LOSEC [Concomitant]
     Active Substance: OMEPRAZOLE
     Dosage: 40 MG, QD TEMPORARILY
     Route: 042
     Dates: start: 20160910, end: 20160910
  10. ROCEPHIN [Concomitant]
     Active Substance: CEFTRIAXONE SODIUM
     Indication: INFECTION PROPHYLAXIS
     Dosage: 2 G, QD TEMPORARILY
     Route: 042
     Dates: start: 20160909, end: 20160909
  11. MECOBALAMIN [Concomitant]
     Active Substance: METHYLCOBALAMIN
     Indication: PAIN
     Dosage: 500 UG, TID
     Route: 048
     Dates: start: 20170811, end: 20170920
  12. TORASEMIDE [Concomitant]
     Active Substance: TORSEMIDE
     Dosage: 10 MG, BID
     Route: 048
     Dates: start: 20170517
  13. MYFORTIC [Suspect]
     Active Substance: MYCOPHENOLATE SODIUM
     Dosage: 360 MG, QD
     Route: 048
     Dates: start: 20171019, end: 20171111
  14. MYFORTIC [Suspect]
     Active Substance: MYCOPHENOLATE SODIUM
     Dosage: 1080 MG, QD
     Route: 048
     Dates: start: 20171123, end: 20171220
  15. ADALAT [Concomitant]
     Active Substance: NIFEDIPINE
     Dosage: 30 MG, BID
     Route: 048
     Dates: start: 20170209
  16. CETIRIZINE HYDROCHLORIDE. [Concomitant]
     Active Substance: CETIRIZINE HYDROCHLORIDE
     Indication: PRODUCT USED FOR UNKNOWN INDICATION
     Dosage: 1 DF, QD
     Route: 048
     Dates: start: 20161122, end: 20161214
  17. TORASEMIDE [Concomitant]
     Active Substance: TORSEMIDE
     Dosage: 20 MG, QD
     Route: 041
     Dates: start: 20160912, end: 20160912
  18. TORASEMIDE [Concomitant]
     Active Substance: TORSEMIDE
     Dosage: 10 MG, TEMPORARILY ONLY ONCE
     Route: 048
     Dates: start: 20170301, end: 20170301
  19. LACTATED RINGERS SOLUTION [Concomitant]
     Active Substance: CALCIUM CHLORIDE\POTASSIUM CHLORIDE\SODIUM CHLORIDE\SODIUM LACTATE
     Dosage: 500 ML, TID TEMPORARILY
     Route: 042
     Dates: start: 20160910, end: 20160910
  20. LACTATED RINGERS SOLUTION [Concomitant]
     Active Substance: CALCIUM CHLORIDE\POTASSIUM CHLORIDE\SODIUM CHLORIDE\SODIUM LACTATE
     Dosage: 500 ML, QD TEMPORARILY
     Dates: start: 20160911, end: 20160911
  21. LEVOCARNITINE. [Concomitant]
     Active Substance: LEVOCARNITINE
     Dosage: 2 G, QD TEMPORARILY
     Route: 042
     Dates: start: 20160910, end: 20160910
  22. LOSEC [Concomitant]
     Active Substance: OMEPRAZOLE
     Dosage: 40 MG, QD
     Route: 042
     Dates: start: 20160911, end: 20160917
  23. RECOMBINANT HUMAN ERYTHROPOIETIN [Concomitant]
     Active Substance: ERYTHROPOIETIN
     Dosage: 4000 IU, TEMPORARILY ONCE
     Route: 058
     Dates: start: 20170309, end: 20170309
  24. TORASEMIDE [Concomitant]
     Active Substance: TORSEMIDE
     Indication: POLYURIA
     Dosage: 10 MG, TID
     Route: 048
     Dates: start: 20170324
  25. SULFAMETHOXAZOLE [Concomitant]
     Active Substance: SULFAMETHOXAZOLE
     Indication: INFECTION PROPHYLAXIS
     Dosage: 1.44 G, TID
     Route: 048
     Dates: start: 20160930
  26. VITAMIN E [Concomitant]
     Active Substance: .ALPHA.-TOCOPHEROL
     Indication: PRODUCT USED FOR UNKNOWN INDICATION
     Dosage: 100 MG, BID
     Route: 048
     Dates: start: 20161013
  27. MYFORTIC [Suspect]
     Active Substance: MYCOPHENOLATE SODIUM
     Dosage: 720 MG, QD
     Route: 048
     Dates: start: 20170119, end: 20170216
  28. MYFORTIC [Suspect]
     Active Substance: MYCOPHENOLATE SODIUM
     Dosage: 900 MG, QD
     Route: 048
     Dates: start: 20170816, end: 20170925
  29. MYFORTIC [Suspect]
     Active Substance: MYCOPHENOLATE SODIUM
     Dosage: 1080 MG, QD
     Route: 048
     Dates: start: 20180125
  30. TACROLIMUS. [Suspect]
     Active Substance: TACROLIMUS
     Indication: RENAL INJURY
     Dosage: 4 MG, QD
     Route: 065
     Dates: start: 20160912, end: 20160912
  31. METHYLPREDNISOLONE ACETATE. [Suspect]
     Active Substance: METHYLPREDNISOLONE ACETATE
     Dosage: 10 MG, QD
     Route: 065
     Dates: start: 20161020, end: 20161121
  32. ADALAT [Concomitant]
     Active Substance: NIFEDIPINE
     Indication: RENAL HYPERTENSION
     Dosage: 30 MG, BID
     Route: 048
     Dates: start: 20160910, end: 20160910
  33. NIFEDIPIN [Concomitant]
     Active Substance: NIFEDIPINE
     Indication: BLOOD PRESSURE INCREASED
     Dosage: 30 MG, BID
     Route: 048
     Dates: start: 20160911, end: 20160922
  34. ALANYL GLUTAMINE [Concomitant]
     Active Substance: ALANYL GLUTAMINE
     Indication: PRODUCT USED FOR UNKNOWN INDICATION
     Dosage: 30 G, QD TEMPORARILY
     Route: 042
     Dates: start: 20160909, end: 20160909
  35. ALPROSTADIL. [Concomitant]
     Active Substance: ALPROSTADIL
     Dosage: 2 ML, QD
     Route: 041
     Dates: start: 20170307, end: 20170313
  36. ANDROGRAPHOLIDE [Concomitant]
     Active Substance: ANDROGRAPHOLIDE
     Indication: PRODUCT USED FOR UNKNOWN INDICATION
     Dosage: 12 ML, QD
     Route: 042
     Dates: start: 20160909, end: 20160909
  37. LACTATED RINGERS SOLUTION [Concomitant]
     Active Substance: CALCIUM CHLORIDE\POTASSIUM CHLORIDE\SODIUM CHLORIDE\SODIUM LACTATE
     Indication: ACID BASE BALANCE ABNORMAL
     Dosage: 500 ML, QD TEMPORARILY
     Route: 042
     Dates: start: 20160909, end: 20160909
  38. ROCEPHIN [Concomitant]
     Active Substance: CEFTRIAXONE SODIUM
     Dosage: 2 G, QD
     Route: 042
     Dates: start: 20160911, end: 20160912
  39. RABEPRAZOLE SODIUM. [Concomitant]
     Active Substance: RABEPRAZOLE SODIUM
     Indication: PROPHYLAXIS AGAINST GASTROINTESTINAL ULCER
     Dosage: 20 MG, QD
     Route: 048
     Dates: start: 20160917, end: 20160922
  40. VALSARTAN. [Concomitant]
     Active Substance: VALSARTAN
     Indication: BLOOD PRESSURE INCREASED
     Dosage: 80 MG, BID
     Route: 048
     Dates: start: 20160923, end: 20170217
  41. BASILIXIMAB [Suspect]
     Active Substance: BASILIXIMAB
     Indication: IMMUNOSUPPRESSANT DRUG THERAPY
     Dosage: 20 MG, QD
     Route: 065
     Dates: start: 20160913, end: 20160913
  42. TACROLIMUS. [Suspect]
     Active Substance: TACROLIMUS
     Dosage: 5 MG, QD
     Route: 065
     Dates: start: 20170217, end: 20170302
  43. DIOVAN [Concomitant]
     Active Substance: VALSARTAN
     Dosage: 80 MG, BID
     Route: 048
     Dates: start: 20160923, end: 20161115
  44. NIFEDIPIN [Concomitant]
     Active Substance: NIFEDIPINE
     Indication: BLOOD PRESSURE INCREASED
     Dosage: 10 MG, QD TEMPORARILY
     Route: 048
     Dates: start: 20170224, end: 20170224
  45. ALPROSTADIL. [Concomitant]
     Active Substance: ALPROSTADIL
     Indication: PRODUCT USED FOR UNKNOWN INDICATION
     Dosage: 10 UG, BID TEMPORARILY
     Route: 042
     Dates: start: 20160909, end: 20160909
  46. BUCLADESINE [Concomitant]
     Indication: PRODUCT USED FOR UNKNOWN INDICATION
     Dosage: 80 MG, QD
     Route: 042
     Dates: start: 20160909, end: 20160909
  47. CALCITRIOL. [Concomitant]
     Active Substance: CALCITRIOL
     Indication: OSTEOPOROSIS PROPHYLAXIS
     Dosage: 0.25 UG, QD
     Route: 048
     Dates: start: 20161012, end: 20161115
  48. CANCIDAS [Concomitant]
     Active Substance: CASPOFUNGIN ACETATE
     Indication: INFECTION PROPHYLAXIS
     Dosage: 50 MG, QD TEMPORARILY
     Route: 042
     Dates: start: 20160911, end: 20160911
  49. INSULIN [Concomitant]
     Active Substance: INSULIN NOS
     Dosage: 80 IU, TEMPORARILY ONCE
     Route: 042
     Dates: start: 20160910, end: 20160910
  50. INSULIN [Concomitant]
     Active Substance: INSULIN NOS
     Dosage: 6 IU, TEMPORARILY TWICE
     Route: 042
     Dates: start: 20160911, end: 20160911
  51. METOPROLOL TARTRATE. [Concomitant]
     Active Substance: METOPROLOL TARTRATE
     Indication: BLOOD PRESSURE INCREASED
     Dosage: 25 MG, QD
     Route: 048
     Dates: start: 20170307
  52. METOPROLOL TARTRATE. [Concomitant]
     Active Substance: METOPROLOL TARTRATE
     Dosage: 25 MG, QD
     Route: 048
     Dates: start: 20170421
  53. RECOMBINANT HUMAN ERYTHROPOIETIN [Concomitant]
     Active Substance: ERYTHROPOIETIN
     Dosage: 4000 IU, TEMPORARILY ONCE
     Route: 058
     Dates: start: 20170313, end: 20170313
  54. SODIUM CHLORIDE. [Concomitant]
     Active Substance: SODIUM CHLORIDE
     Indication: PRODUCT USED FOR UNKNOWN INDICATION
     Dosage: 100 ML, QD
     Route: 065
     Dates: start: 20170307, end: 20170313
  55. CODEINE PHOSPHATE W/IBUPROFEN [Concomitant]
     Indication: PAIN
     Dosage: 1 DF, BID
     Route: 048
     Dates: start: 20170806
  56. MYFORTIC [Suspect]
     Active Substance: MYCOPHENOLATE SODIUM
     Indication: RENAL TRANSPLANT
     Dosage: 1440 MG, QD
     Route: 048
     Dates: start: 20160910, end: 20160929
  57. MYFORTIC [Suspect]
     Active Substance: MYCOPHENOLATE SODIUM
     Dosage: 720 MG, QD
     Route: 048
     Dates: start: 20170517, end: 20170531
  58. MYFORTIC [Suspect]
     Active Substance: MYCOPHENOLATE SODIUM
     Dosage: 720 MG, QD
     Route: 048
     Dates: start: 20170926, end: 20170929
  59. MYFORTIC [Suspect]
     Active Substance: MYCOPHENOLATE SODIUM
     Dosage: 720 MG, QD
     Route: 048
     Dates: start: 20171221, end: 20180124
  60. BASILIXIMAB [Suspect]
     Active Substance: BASILIXIMAB
     Indication: RENAL TRANSPLANT
     Dosage: 20 MG, QD
     Route: 065
     Dates: start: 20160909, end: 20160909
  61. TACROLIMUS. [Suspect]
     Active Substance: TACROLIMUS
     Indication: IMMUNOSUPPRESSANT DRUG THERAPY
     Dosage: 4 MG, QD
     Route: 065
     Dates: start: 20160911, end: 20160911
  62. TACROLIMUS. [Suspect]
     Active Substance: TACROLIMUS
     Dosage: 1 MG, QD
     Route: 065
     Dates: start: 20160912, end: 20160913
  63. METHYLPREDNISOLONE. [Suspect]
     Active Substance: METHYLPREDNISOLONE
     Dosage: 500 MG, QD
     Route: 065
     Dates: start: 20160910, end: 20160911
  64. METHYLPREDNISOLONE. [Suspect]
     Active Substance: METHYLPREDNISOLONE
     Dosage: 250 MG, QD
     Route: 065
     Dates: start: 20160912, end: 20160914
  65. ALPROSTADIL. [Concomitant]
     Active Substance: ALPROSTADIL
     Dosage: 5 UG, BID TEMPORARILY
     Route: 042
     Dates: start: 20160910, end: 20160910
  66. ALPROSTADIL. [Concomitant]
     Active Substance: ALPROSTADIL
     Dosage: 5 UG, Q6H
     Route: 042
     Dates: start: 20160911, end: 20160915
  67. URAPIDIL HCL [Concomitant]
     Indication: BLOOD PRESSURE INCREASED
     Dosage: 250 MG, QD TEMPORARILY
     Route: 042
     Dates: start: 20160909, end: 20160909
  68. SODIUM BICARBONATE. [Concomitant]
     Active Substance: SODIUM BICARBONATE
     Indication: PRODUCT USED FOR UNKNOWN INDICATION
     Dosage: 125 ML, QD TEMPORARILY
     Route: 042
     Dates: start: 20160910, end: 20160910
  69. LIDOCAINE HYDROCHLORIDE. [Concomitant]
     Active Substance: LIDOCAINE HYDROCHLORIDE
     Indication: ANAESTHESIA
     Dosage: 0.1 G, TEMPORARILY ONCE
     Route: 065
     Dates: start: 20170124, end: 20170124
  70. RECOMBINANT HUMAN ERYTHROPOIETIN [Concomitant]
     Active Substance: ERYTHROPOIETIN
     Dosage: 4000 IU, TEMPORARILY ONCE
     Route: 058
     Dates: start: 20170306, end: 20170306
  71. NIFEDIPINE. [Concomitant]
     Active Substance: NIFEDIPINE
     Dosage: 30 MG, BID
     Route: 048
     Dates: start: 20170324
  72. MYFORTIC [Suspect]
     Active Substance: MYCOPHENOLATE SODIUM
     Dosage: 1080 MG, QD
     Route: 048
     Dates: start: 20170217, end: 20170516
  73. MYFORTIC [Suspect]
     Active Substance: MYCOPHENOLATE SODIUM
     Dosage: 720 MG, QD
     Route: 048
     Dates: start: 20171112, end: 20171122
  74. TACROLIMUS. [Suspect]
     Active Substance: TACROLIMUS
     Dosage: 6 MG, QD
     Route: 065
     Dates: start: 20160913, end: 20160929
  75. TACROLIMUS. [Suspect]
     Active Substance: TACROLIMUS
     Dosage: 4 MG, QD
     Route: 065
     Dates: start: 20160930, end: 20161019
  76. TACROLIMUS. [Suspect]
     Active Substance: TACROLIMUS
     Dosage: 3 MG, QD
     Route: 065
     Dates: start: 20161020, end: 20170118
  77. TACROLIMUS. [Suspect]
     Active Substance: TACROLIMUS
     Dosage: 4 MG, QD
     Route: 065
     Dates: start: 20170209, end: 20170216
  78. TACROLIMUS. [Suspect]
     Active Substance: TACROLIMUS
     Dosage: 3 MG, QD
     Route: 065
     Dates: start: 20170303, end: 20170303
  79. METHYLPREDNISOLONE ACETATE. [Suspect]
     Active Substance: METHYLPREDNISOLONE ACETATE
     Indication: PRODUCT USED FOR UNKNOWN INDICATION
     Dosage: 30 MG, QD
     Route: 065
     Dates: start: 20160914, end: 20160918
  80. METHYLPREDNISOLONE. [Suspect]
     Active Substance: METHYLPREDNISOLONE
     Indication: PRODUCT USED FOR UNKNOWN INDICATION
     Dosage: 1000 MG, QD
     Route: 065
     Dates: start: 20160909, end: 20160909
  81. DIOVAN [Concomitant]
     Active Substance: VALSARTAN
     Indication: RENAL HYPERTENSION
     Dosage: 80 MG, BID TEMPORARILY
     Route: 048
     Dates: start: 20160910, end: 20160910
  82. BETALOC [Concomitant]
     Active Substance: METOPROLOL TARTRATE
     Indication: RENAL HYPERTENSION
     Dosage: 25 MG, QD
     Route: 065
     Dates: start: 20170307
  83. AMBROXOL HYDROCHLORIDE [Concomitant]
     Active Substance: AMBROXOL HYDROCHLORIDE
     Indication: PRODUCT USED FOR UNKNOWN INDICATION
     Dosage: 60 MG, BID
     Route: 042
     Dates: start: 20160909, end: 20160909
  84. CALCIUM GLUCONATE. [Concomitant]
     Active Substance: CALCIUM GLUCONATE
     Indication: HYPOKALAEMIA
     Dosage: 1 G, QD
     Route: 042
     Dates: start: 20160909, end: 20160909
  85. CANCIDAS [Concomitant]
     Active Substance: CASPOFUNGIN ACETATE
     Dosage: 50 MG, QD
     Route: 042
     Dates: start: 20160912, end: 20160915
  86. LIDOCAINE HYDROCHLORIDE. [Concomitant]
     Active Substance: LIDOCAINE HYDROCHLORIDE
     Dosage: 1 G, QD
     Route: 042
     Dates: start: 20170224, end: 20170224
  87. LOXOPROFEN SODIUM [Concomitant]
     Active Substance: LOXOPROFEN SODIUM
     Indication: ANALGESIC THERAPY
     Dosage: 60 MG, TEMPORARILY ONCE
     Route: 048
     Dates: start: 20170124, end: 20170124
  88. LIPITOR [Concomitant]
     Active Substance: ATORVASTATIN CALCIUM
     Indication: LIPIDS INCREASED
     Dosage: 20 MG, QD
     Route: 048
     Dates: start: 20161116, end: 20161130
  89. RABEPRAZOLE SODIUM. [Concomitant]
     Active Substance: RABEPRAZOLE SODIUM
     Dosage: 20 MG, BID
     Route: 048
     Dates: start: 20161013
  90. GANCICLOVIR. [Concomitant]
     Active Substance: GANCICLOVIR
     Indication: INFECTION PROPHYLAXIS
     Dosage: 0.5 G, TID
     Route: 048
     Dates: start: 20160923, end: 20161130
  91. NIFEDIPINE. [Concomitant]
     Active Substance: NIFEDIPINE
     Indication: BLOOD PRESSURE INCREASED
     Dosage: 30 MG, BID
     Route: 048
     Dates: start: 20160923, end: 20170208
  92. VALSARTAN. [Concomitant]
     Active Substance: VALSARTAN
     Dosage: 80 MG, BID
     Route: 048
     Dates: start: 20170324
  93. MYFORTIC [Suspect]
     Active Substance: MYCOPHENOLATE SODIUM
     Indication: IMMUNOSUPPRESSANT DRUG THERAPY
     Dosage: 1080 MG, QD
     Route: 048
     Dates: start: 20160930, end: 20161115
  94. METHYLPREDNISOLONE ACETATE. [Suspect]
     Active Substance: METHYLPREDNISOLONE ACETATE
     Dosage: 25 MG, QD
     Route: 065
     Dates: start: 20160919, end: 20160929
  95. METHYLPREDNISOLONE ACETATE. [Suspect]
     Active Substance: METHYLPREDNISOLONE ACETATE
     Dosage: 10 MG, QD
     Route: 065
     Dates: start: 20161215
  96. ADALAT [Concomitant]
     Active Substance: NIFEDIPINE
     Indication: BLOOD PRESSURE INCREASED
     Dosage: 30 MG, BID
     Route: 048
     Dates: start: 20160923, end: 20161115
  97. ALPROSTADIL. [Concomitant]
     Active Substance: ALPROSTADIL
     Dosage: 2 ML, TEMPORARILY ONCE
     Route: 041
     Dates: start: 20170306, end: 20170306
  98. AMBROXOL HYDROCHLORIDE [Concomitant]
     Active Substance: AMBROXOL HYDROCHLORIDE
     Dosage: 30 MG, QD
     Route: 055
     Dates: start: 20161010, end: 20161010
  99. CALCITRIOL. [Concomitant]
     Active Substance: CALCITRIOL
     Dosage: 0.25 UG, QD
     Route: 048
     Dates: start: 20161116
  100. CEFOPERAZONE + SULBACTAM [Concomitant]
     Active Substance: CEFOPERAZONE SODIUM\SULBACTAM
     Indication: INFECTION PROPHYLAXIS
     Dosage: 1.5 G, BID
     Route: 042
     Dates: start: 20160912, end: 20160912
  101. CEFOPERAZONE + SULBACTAM [Concomitant]
     Active Substance: CEFOPERAZONE SODIUM\SULBACTAM
     Dosage: 1.5 G, Q12H
     Route: 042
     Dates: start: 20160913, end: 20160922
  102. TORASEMIDE [Concomitant]
     Active Substance: TORSEMIDE
     Indication: POLYURIA
     Dosage: 20 MG, TID
     Route: 041
     Dates: start: 20160910, end: 20160910
  103. TORASEMIDE [Concomitant]
     Active Substance: TORSEMIDE
     Dosage: 20 MG, QD
     Route: 041
     Dates: start: 20160911, end: 20160911
  104. TORASEMIDE [Concomitant]
     Active Substance: TORSEMIDE
     Dosage: 20 MG, QD
     Route: 048
     Dates: start: 20170303, end: 20170313
  105. INSULIN [Concomitant]
     Active Substance: INSULIN NOS
     Dosage: 6 IU, TEMPORARILY 7 TIMES
     Route: 042
     Dates: start: 20160910, end: 20160910
  106. RABEPRAZOLE SODIUM. [Concomitant]
     Active Substance: RABEPRAZOLE SODIUM
     Dosage: 20 MG, QD
     Route: 048
     Dates: start: 20160923
  107. METOPROLOL SUCCINATE. [Concomitant]
     Active Substance: METOPROLOL SUCCINATE
     Indication: PRODUCT USED FOR UNKNOWN INDICATION
     Dosage: 47.5 MG, TEMPORARILY ONCE
     Route: 065
     Dates: start: 20170225, end: 20170225
  108. DILTIAZEM HYDROCHLORIDE. [Concomitant]
     Active Substance: DILTIAZEM HYDROCHLORIDE
     Indication: BLOOD PRESSURE INCREASED
     Dosage: 30 MG, BID
     Route: 048
     Dates: start: 20170505
  109. ROCALTROL [Concomitant]
     Active Substance: CALCITRIOL
     Indication: OSTEOPOROSIS PROPHYLAXIS
     Dosage: 0.25 UG, QD
     Route: 048
     Dates: start: 20170421
  110. MYFORTIC [Suspect]
     Active Substance: MYCOPHENOLATE SODIUM
     Dosage: 720 MG, QD
     Route: 048
     Dates: start: 20161116, end: 20161214
  111. MYFORTIC [Suspect]
     Active Substance: MYCOPHENOLATE SODIUM
     Dosage: 540 MG, QD
     Route: 048
     Dates: start: 20161215, end: 20170118
  112. METHYLPREDNISOLONE ACETATE. [Suspect]
     Active Substance: METHYLPREDNISOLONE ACETATE
     Dosage: 15 MG, QD
     Route: 065
     Dates: start: 20160930, end: 20161019
  113. METHYLPREDNISOLONE ACETATE. [Suspect]
     Active Substance: METHYLPREDNISOLONE ACETATE
     Dosage: 15 MG, QD
     Route: 065
     Dates: start: 20161122, end: 20161214
  114. LACTATED RINGERS SOLUTION [Concomitant]
     Active Substance: CALCIUM CHLORIDE\POTASSIUM CHLORIDE\SODIUM CHLORIDE\SODIUM LACTATE
     Dosage: 500 ML, QD TEMPORARILY
     Route: 042
     Dates: start: 20160910, end: 20160910
  115. DOXAZOSIN MESYLATE. [Concomitant]
     Active Substance: DOXAZOSIN MESYLATE
     Indication: PRODUCT USED FOR UNKNOWN INDICATION
     Dosage: 4 MG, QD
     Route: 048
     Dates: start: 20170227, end: 20170309
  116. INSULIN [Concomitant]
     Active Substance: INSULIN NOS
     Indication: BLOOD GLUCOSE ABNORMAL
     Dosage: 80 IU, QD TEMPORARILY
     Route: 042
     Dates: start: 20160909, end: 20160909
  117. INSULIN [Concomitant]
     Active Substance: INSULIN NOS
     Dosage: 6 IU, TEMPORARILY 6 TIMES
     Route: 042
     Dates: start: 20160909, end: 20160909
  118. LIPITOR [Concomitant]
     Active Substance: ATORVASTATIN CALCIUM
     Dosage: 10 MG, TID
     Route: 048
     Dates: start: 20161201, end: 20170216
  119. LEVOCARNITINE. [Concomitant]
     Active Substance: LEVOCARNITINE
     Indication: PRODUCT USED FOR UNKNOWN INDICATION
     Dosage: 2 G, QD TEMPORARILY
     Route: 042
     Dates: start: 20160909, end: 20160909
  120. EBASTINE [Concomitant]
     Active Substance: EBASTINE
     Indication: HYPERSENSITIVITY
     Dosage: 1 DF, QD
     Route: 048
     Dates: start: 20161122, end: 20161214
  121. ROCEPHIN [Concomitant]
     Active Substance: CEFTRIAXONE SODIUM
     Dosage: 2 G, QD TEMPORARILY
     Route: 042
     Dates: start: 20160910, end: 20160910
  122. SODIUM BICARBONATE. [Concomitant]
     Active Substance: SODIUM BICARBONATE
     Indication: PROPHYLAXIS AGAINST GASTROINTESTINAL ULCER
     Dosage: 2.5 G, TID
     Route: 048
     Dates: start: 20170421
  123. RECOMBINANT HUMAN ERYTHROPOIETIN [Concomitant]
     Active Substance: ERYTHROPOIETIN
     Indication: ANAEMIA PROPHYLAXIS
     Dosage: 4000 IU, TIW TEMPORARILY ONCE
     Route: 058
     Dates: start: 20170302, end: 20170302

REACTIONS (13)
  - Blood creatinine increased [Not Recovered/Not Resolved]
  - Kidney transplant rejection [Not Recovered/Not Resolved]
  - Leukopenia [Recovered/Resolved]
  - Influenza [Recovered/Resolved]
  - Cough [Not Recovered/Not Resolved]
  - Pneumocystis jirovecii infection [Recovering/Resolving]
  - Enteritis [Recovering/Resolving]
  - Nephropathy toxic [Not Recovered/Not Resolved]
  - Lung infection [Recovering/Resolving]
  - Herpes zoster [Not Recovered/Not Resolved]
  - Pyrexia [Not Recovered/Not Resolved]
  - Leukopenia [Recovered/Resolved]
  - Hypersensitivity [Recovered/Resolved]

NARRATIVE: CASE EVENT DATE: 20161115
